FAERS Safety Report 13865050 (Version 1)
Quarter: 2017Q3

REPORT INFORMATION
  Report Type: Spontaneous
  Country: GB (occurrence: GB)
  Receive Date: 20170814
  Receipt Date: 20170814
  Transmission Date: 20171127
  Serious: Yes (Other)
  Sender: FDA-Public Use
  Company Number: GB-TEVA-794832ACC

PATIENT
  Age: 40 Year
  Sex: Female
  Weight: 120 kg

DRUGS (1)
  1. COCODAMOL [Suspect]
     Active Substance: ACETAMINOPHEN\CODEINE PHOSPHATE
     Indication: PELVIC PAIN
     Dosage: 12 DOSAGE FORMS DAILY;
     Route: 048
     Dates: start: 20170718, end: 20170721

REACTIONS (4)
  - Malaise [Recovering/Resolving]
  - Skin warm [Recovering/Resolving]
  - Dizziness [Recovering/Resolving]
  - Palpitations [Recovering/Resolving]

NARRATIVE: CASE EVENT DATE: 20170719
